FAERS Safety Report 6178529-8 (Version None)
Quarter: 2009Q2

REPORT INFORMATION
  Report Type: 
  Country: None (occurrence: None)
  Receive Date: 20090430
  Receipt Date: 20090418
  Transmission Date: 20091009
  Serious: Yes (Other)
  Sender: FDA-Public Use
  Company Number: B0571535A

PATIENT
  Sex: 0

DRUGS (2)
  1. REQUIP [Suspect]
     Indication: PARKINSON'S DISEASE
  2. MODOPAR (FORMULATION UNKNOWN) (MODOPAR) [Suspect]
     Indication: PARKINSON'S DISEASE

REACTIONS (6)
  - ABNORMAL BEHAVIOUR [None]
  - AGGRESSION [None]
  - DEPENDENCE [None]
  - HYPERSEXUALITY [None]
  - PATHOLOGICAL GAMBLING [None]
  - PSYCHOMOTOR HYPERACTIVITY [None]
